FAERS Safety Report 4566400-4 (Version None)
Quarter: 2005Q1

REPORT INFORMATION
  Report Type: 
  Country: None (occurrence: None)
  Receive Date: 20050201
  Receipt Date: 20050120
  Transmission Date: 20050727
  Serious: Yes (Hospitalization)
  Sender: FDA-Public Use
  Company Number: 200510269FR

PATIENT
  Age: 82 Year
  Sex: Female

DRUGS (3)
  1. LASILIX 40 MG [Suspect]
     Route: 048
     Dates: end: 20041129
  2. BISOPROLOL FUMARATE AND HYDROCHLOROTHIAZIDE [Suspect]
     Route: 048
     Dates: end: 20041129
  3. INDAPAMIDE [Suspect]
     Route: 048
     Dates: end: 20041129

REACTIONS (6)
  - ABASIA [None]
  - FALL [None]
  - HYPOKALAEMIA [None]
  - HYPOVOLAEMIA [None]
  - RENAL FAILURE ACUTE [None]
  - SENSORY DISTURBANCE [None]
